FAERS Safety Report 5331847-5 (Version None)
Quarter: 2007Q2

REPORT INFORMATION
  Report Type: 
  Country: None (occurrence: None)
  Receive Date: 20070306
  Receipt Date: 20051121
  Transmission Date: 20071010
  Serious: Yes (Other)
  Sender: FDA-Public Use
  Company Number: A03200503852

PATIENT
  Sex: Male

DRUGS (1)
  1. PLAVIX [Suspect]
     Indication: STENT PLACEMENT
     Dosage: NI UNK ORAL
     Route: 048
     Dates: start: 20041201

REACTIONS (6)
  - EPISTAXIS [None]
  - HAEMATOCRIT DECREASED [None]
  - INCISION SITE HAEMATOMA [None]
  - LEUKOPENIA [None]
  - THROMBOCYTOPENIA [None]
  - VASCULAR RUPTURE [None]
